FAERS Safety Report 4608800-X (Version None)
Quarter: 2005Q1

REPORT INFORMATION
  Report Type: 
  Country: None (occurrence: None)
  Receive Date: 20050309
  Receipt Date: 20050222
  Transmission Date: 20050727
  Serious: Yes (Other)
  Sender: FDA-Public Use
  Company Number: 141468USA

PATIENT
  Age: 79 Year
  Sex: Male

DRUGS (1)
  1. METOPROLOL [Suspect]
     Dosage: 100 MILLIGRAM ORAL
     Route: 048
     Dates: start: 20040924

REACTIONS (2)
  - ANGINA PECTORIS [None]
  - PAIN IN EXTREMITY [None]
